FAERS Safety Report 16128520 (Version 1)
Quarter: 2019Q2

REPORT INFORMATION
  Report Type: Spontaneous
  Country: US (occurrence: US)
  Receive Date: 20190328
  Receipt Date: 20190328
  Transmission Date: 20190711
  Serious: No
  Sender: FDA-Public Use
  Company Number: US-MISSION PHARMACAL COMPANY-2064821

PATIENT
  Sex: Male

DRUGS (1)
  1. TINIDAZOLE. [Suspect]
     Active Substance: TINIDAZOLE
     Indication: PROSTATITIS
     Route: 065

REACTIONS (2)
  - Urine abnormality [Unknown]
  - Blood urine present [Unknown]
